FAERS Safety Report 5504284-8 (Version None)
Quarter: 2007Q4

REPORT INFORMATION
  Report Type: 
  Country: None (occurrence: None)
  Receive Date: 20071101
  Receipt Date: 20071018
  Transmission Date: 20080405
  Serious: Yes (Life-Threatening, Hospitalization, Other)
  Sender: FDA-Public Use
  Company Number: GB-RANBAXY-2007RR-10851

PATIENT

DRUGS (3)
  1. FLUOXETINE [Suspect]
     Dosage: 20 MG, UNK
     Route: 048
     Dates: start: 20070920, end: 20071008
  2. BENDROFLUMETHIAZIDE [Concomitant]
     Dosage: 2.5 MG, UNK
     Route: 048
  3. LISINOPRIL [Concomitant]
     Dosage: 30 MG, UNK
     Route: 048
     Dates: start: 20040101

REACTIONS (7)
  - BLOOD PRESSURE DECREASED [None]
  - C-REACTIVE PROTEIN INCREASED [None]
  - OXYGEN SATURATION INCREASED [None]
  - PANCREATITIS ACUTE [None]
  - PYREXIA [None]
  - RESPIRATION ABNORMAL [None]
  - WHITE BLOOD CELL COUNT INCREASED [None]
